FAERS Safety Report 20202197 (Version 2)
Quarter: 2022Q1

REPORT INFORMATION
  Report Type: Spontaneous
  Country: US (occurrence: US)
  Receive Date: 20211217
  Receipt Date: 20220228
  Transmission Date: 20220424
  Serious: Yes (Disabling, Other)
  Sender: FDA-Public Use
  Company Number: US-REGENERON PHARMACEUTICALS, INC.-2021-89867

PATIENT

DRUGS (2)
  1. EYLEA [Suspect]
     Active Substance: AFLIBERCEPT
     Indication: Age-related macular degeneration
     Dosage: 2 MG, VARIABLE FREQUENCY, INTO RIGHT EYE
     Route: 031
     Dates: start: 20140527, end: 20140527
  2. EYLEA [Suspect]
     Active Substance: AFLIBERCEPT
     Dosage: 2 MG, UNK
     Route: 031
     Dates: start: 20210831

REACTIONS (2)
  - Blindness unilateral [Unknown]
  - Non-infectious endophthalmitis [Recovered/Resolved]

NARRATIVE: CASE EVENT DATE: 20210101
